FAERS Safety Report 6232106-9 (Version None)
Quarter: 2009Q2

REPORT INFORMATION
  Report Type: 
  Country: None (occurrence: None)
  Receive Date: 20090616
  Receipt Date: 20090605
  Transmission Date: 20091009
  Serious: Yes (Other)
  Sender: FDA-Public Use
  Company Number: US-WATSON-2009-04176

PATIENT
  Sex: Female

DRUGS (2)
  1. FERRLECIT [Suspect]
     Indication: IRON DEFICIENCY ANAEMIA
     Dosage: 200 MG, SLOW IV INFUSION OVER 3 HOURS
     Route: 042
     Dates: start: 20090601, end: 20090601
  2. FERRLECIT [Suspect]
     Dosage: 200 MG, SLOW IV INFUSION OVER 3 HOURS
     Route: 042
     Dates: start: 20090601, end: 20090601

REACTIONS (8)
  - ABDOMINAL PAIN [None]
  - BLOOD PRESSURE DECREASED [None]
  - DIARRHOEA [None]
  - HEART RATE DECREASED [None]
  - INFUSION SITE RASH [None]
  - INFUSION SITE URTICARIA [None]
  - NAUSEA [None]
  - OXYGEN SATURATION DECREASED [None]
